FAERS Safety Report 7509067-5 (Version None)
Quarter: 2011Q2

REPORT INFORMATION
  Report Type: 
  Country: None (occurrence: None)
  Receive Date: 20110527
  Receipt Date: 20110525
  Transmission Date: 20111010
  Serious: Yes (Death)
  Sender: FDA-Public Use
  Company Number: JP-SANOFI-AVENTIS-2011SA032661

PATIENT
  Age: 72 Year
  Sex: Female

DRUGS (3)
  1. CISPLATIN [Concomitant]
  2. TAXOTERE [Suspect]
     Route: 051
  3. FLUOROURACIL [Concomitant]

REACTIONS (3)
  - HEPATIC FUNCTION ABNORMAL [None]
  - PANCYTOPENIA [None]
  - DISSEMINATED INTRAVASCULAR COAGULATION [None]
